FAERS Safety Report 10036640 (Version 1)
Quarter: 2014Q1

REPORT INFORMATION
  Report Type: Spontaneous
  Country: US (occurrence: US)
  Receive Date: 20140326
  Receipt Date: 20140326
  Transmission Date: 20141002
  Serious: No
  Sender: FDA-Public Use
  Company Number: US-BIOGENIDEC-2014BI025483

PATIENT
  Sex: Female
  Weight: 78 kg

DRUGS (12)
  1. AVONEX [Suspect]
     Indication: MULTIPLE SCLEROSIS
     Route: 030
  2. AVONEX [Suspect]
     Indication: MULTIPLE SCLEROSIS
     Route: 030
     Dates: start: 2001
  3. AVONEX [Suspect]
     Indication: MULTIPLE SCLEROSIS
     Route: 030
     Dates: start: 20030730
  4. TECFIDERA [Concomitant]
     Route: 048
  5. AMLODIPINE [Concomitant]
     Route: 048
  6. DALFAMPIRIDINE [Concomitant]
     Route: 048
  7. PROZAC [Concomitant]
     Route: 048
  8. LIDODERM [Concomitant]
  9. DITROPAN [Concomitant]
     Route: 048
  10. ZANAFLEX [Concomitant]
     Route: 048
  11. AMPYRA [Concomitant]
  12. REBIF [Concomitant]

REACTIONS (1)
  - Adverse event [Unknown]
